FAERS Safety Report 9419734 (Version 1)
Quarter: 2013Q3

REPORT INFORMATION
  Report Type: Spontaneous
  Country: BR (occurrence: BR)
  Receive Date: 20130725
  Receipt Date: 20130725
  Transmission Date: 20140515
  Serious: Yes (Hospitalization, Other)
  Sender: FDA-Public Use
  Company Number: BR-PFIZER INC-2013214148

PATIENT
  Age: 76 Year
  Sex: Female

DRUGS (7)
  1. LIPITOR [Suspect]
     Indication: BLOOD CHOLESTEROL INCREASED
     Dosage: 40 MG, 1X/DAY
     Route: 048
     Dates: start: 20100612
  2. LIPITOR [Suspect]
     Indication: CARDIAC DISORDER
  3. ATENOLOL [Concomitant]
     Indication: CARDIAC DISORDER
  4. DIOVAN HCT [Concomitant]
     Indication: CARDIAC DISORDER
     Dosage: UNK
  5. FONERGIN [Concomitant]
     Indication: CARDIAC DISORDER
  6. PROPRANOLOL [Concomitant]
     Indication: CARDIAC DISORDER
  7. SUSTRATE [Concomitant]
     Indication: HYPERTENSION

REACTIONS (6)
  - Chest pain [Unknown]
  - Pulmonary oedema [Not Recovered/Not Resolved]
  - Vein disorder [Not Recovered/Not Resolved]
  - Blood pressure increased [Unknown]
  - Drug ineffective [Unknown]
  - Feeling abnormal [Unknown]
